FAERS Safety Report 12746653 (Version 1)
Quarter: 2016Q3

REPORT INFORMATION
  Report Type: Report from Study
  Country: MX (occurrence: MX)
  Receive Date: 20160915
  Receipt Date: 20160915
  Transmission Date: 20161109
  Serious: Yes (Other)
  Sender: FDA-Public Use
  Company Number: MX-AMGEN-MEXSL2016079408

PATIENT
  Age: 73 Year
  Sex: Female
  Weight: 39 kg

DRUGS (1)
  1. VECTIBIX [Suspect]
     Active Substance: PANITUMUMAB
     Indication: METASTASES TO OVARY
     Dosage: UNK, EVERY FIFTEEN DAYS
     Route: 042
     Dates: start: 201604

REACTIONS (11)
  - Eye irritation [Recovered/Resolved]
  - Vision blurred [Recovered/Resolved]
  - Eye pain [Recovered/Resolved]
  - Dry eye [Recovered/Resolved]
  - Tachycardia [Recovered/Resolved]
  - Dry skin [Recovering/Resolving]
  - Rash [Unknown]
  - Skin fissures [Recovered/Resolved with Sequelae]
  - Acne [Recovered/Resolved with Sequelae]
  - Skin exfoliation [Recovering/Resolving]
  - Skin haemorrhage [Recovered/Resolved with Sequelae]

NARRATIVE: CASE EVENT DATE: 2016
